FAERS Safety Report 26055267 (Version 1)
Quarter: 2025Q4

REPORT INFORMATION
  Report Type: Spontaneous
  Country: US (occurrence: US)
  Receive Date: 20251117
  Receipt Date: 20251117
  Transmission Date: 20260118
  Serious: No
  Sender: SANOFI AVENTIS
  Company Number: US-SA-2025SA337871

PATIENT
  Sex: Female

DRUGS (1)
  1. LEMTRADA [Suspect]
     Active Substance: ALEMTUZUMAB
     Dosage: UNK
     Route: 041

REACTIONS (6)
  - Anal incontinence [Unknown]
  - Urinary incontinence [Unknown]
  - Muscular weakness [Unknown]
  - Tremor [Unknown]
  - Lethargy [Unknown]
  - Facial paresis [Unknown]
